FAERS Safety Report 4559510-9 (Version None)
Quarter: 2005Q1

REPORT INFORMATION
  Report Type: 
  Country: None (occurrence: None)
  Receive Date: 20050119
  Receipt Date: 20050104
  Transmission Date: 20050727
  Serious: Yes (Hospitalization)
  Sender: FDA-Public Use
  Company Number: 2005-00034

PATIENT
  Age: 30 Year
  Sex: Female

DRUGS (5)
  1. AMOXAPINE [Suspect]
     Indication: DEPRESSION
     Dosage: 200 MG X 1 , ORAL
     Route: 048
     Dates: end: 20030918
  2. AMOXAPINE [Suspect]
     Indication: DEPRESSION
     Dosage: 200 MG X 1 , ORAL
     Route: 048
     Dates: start: 20030919, end: 20030919
  3. CAFFEINE(CAFFEINE) [Suspect]
     Dosage: 4.8 GRAMS X 1, ORAL
     Route: 048
     Dates: start: 20030919, end: 20030919
  4. PAROXETINE(PAROXETINE) 20MG [Suspect]
     Indication: DEPRESSION
     Dosage: 1 TABLET X 1 , ORAL
     Route: 048
     Dates: end: 20030918
  5. PAROXETINE(PAROXETINE) 20MG [Suspect]
     Indication: DEPRESSION
     Dosage: 1 TABLET X 1 , ORAL
     Route: 048
     Dates: start: 20030919, end: 20030919

REACTIONS (5)
  - BLOOD CAFFEINE INCREASED [None]
  - DRUG INTERACTION POTENTIATION [None]
  - INTENTIONAL MISUSE [None]
  - OVERDOSE [None]
  - SEROTONIN SYNDROME [None]
